FAERS Safety Report 4653662-8 (Version None)
Quarter: 2005Q2

REPORT INFORMATION
  Report Type: 
  Country: None (occurrence: None)
  Receive Date: 20050505
  Receipt Date: 20050426
  Transmission Date: 20051028
  Serious: Yes (Hospitalization, Other)
  Sender: FDA-Public Use
  Company Number: US-JNJFOC-20050403349

PATIENT
  Age: 52 Year
  Sex: Female
  Weight: 82 kg

DRUGS (4)
  1. DOXIL [Suspect]
     Indication: BREAST CANCER
     Dosage: X 4 CYCLES
     Route: 042
  2. TAXOTERE [Suspect]
     Indication: BREAST CANCER
     Route: 042
  3. PYRIDOXINE HCL [Suspect]
     Indication: BREAST CANCER
     Route: 049
  4. COUMADIN [Concomitant]
     Route: 049

REACTIONS (1)
  - PNEUMONITIS [None]
